FAERS Safety Report 7684711-0 (Version None)
Quarter: 2011Q3

REPORT INFORMATION
  Report Type: 
  Country: None (occurrence: None)
  Receive Date: 20110810
  Receipt Date: 20110803
  Transmission Date: 20111222
  Serious: Yes (Hospitalization)
  Sender: FDA-Public Use
  Company Number: 1000022704

PATIENT
  Age: 82 Year
  Sex: Female

DRUGS (3)
  1. METFORMIN HCL [Concomitant]
  2. DALIRESP [Suspect]
     Indication: CHRONIC OBSTRUCTIVE PULMONARY DISEASE
     Dosage: 500 MCG(500 MCG, 1 IN 1 D), ORAL
     Route: 048
     Dates: start: 20110623, end: 20110630
  3. GLIMEPIRIDE (GLIMEPIRIDE) (GLIMEPIRIDE) [Concomitant]

REACTIONS (2)
  - BLOOD GLUCOSE DECREASED [None]
  - FATIGUE [None]
